FAERS Safety Report 6107600-1 (Version None)
Quarter: 2009Q1

REPORT INFORMATION
  Report Type: 
  Country: None (occurrence: None)
  Receive Date: 20090309
  Receipt Date: 20090303
  Transmission Date: 20090719
  Serious: Yes (Life-Threatening, Hospitalization)
  Sender: FDA-Public Use
  Company Number: JP-ASTRAZENECA-2008SE05412

PATIENT
  Age: 54 Year
  Sex: Male
  Weight: 60 kg

DRUGS (13)
  1. BLOPRESS [Suspect]
     Indication: CARDIAC FAILURE CHRONIC
     Route: 048
     Dates: start: 20070606, end: 20080409
  2. ASPIRIN [Suspect]
     Indication: MYOCARDIAL ISCHAEMIA
     Route: 048
     Dates: end: 20080729
  3. TAKEPRON [Concomitant]
     Indication: GASTRIC ULCER
     Route: 048
     Dates: end: 20080729
  4. ITOROL [Concomitant]
     Indication: MYOCARDIAL ISCHAEMIA
     Route: 048
     Dates: end: 20080729
  5. SIGMART [Concomitant]
     Indication: MYOCARDIAL ISCHAEMIA
     Route: 048
     Dates: end: 20080729
  6. LIPITOR [Concomitant]
     Indication: HYPERLIPIDAEMIA
     Route: 048
     Dates: end: 20080729
  7. REPTOR [Concomitant]
     Indication: HEPATITIS C
     Route: 048
     Dates: end: 20080729
  8. NEOPHAGEN C [Concomitant]
     Indication: HEPATITIS C
     Route: 048
     Dates: end: 20080729
  9. ADALAT [Concomitant]
     Indication: HYPERTENSION
     Route: 048
     Dates: end: 20080729
  10. INSULIN HUMAN [Concomitant]
     Indication: DIABETES MELLITUS
     Route: 042
     Dates: end: 20080729
  11. ACECOL [Concomitant]
     Indication: CARDIAC FAILURE CHRONIC
     Route: 048
     Dates: end: 20080729
  12. LASIX [Concomitant]
     Indication: CARDIAC FAILURE CHRONIC
     Route: 048
     Dates: end: 20080729
  13. ALDACTONE [Concomitant]
     Indication: CARDIAC FAILURE CHRONIC
     Route: 048
     Dates: end: 20080729

REACTIONS (2)
  - CARDIAC FAILURE [None]
  - CEREBRAL HAEMORRHAGE [None]
